FAERS Safety Report 12632364 (Version 2)
Quarter: 2016Q3

REPORT INFORMATION
  Report Type: Spontaneous
  Country: US (occurrence: US)
  Receive Date: 20160808
  Receipt Date: 20160808
  Transmission Date: 20161109
  Serious: No
  Sender: FDA-Public Use
  Company Number: US-BEH-2016062630

PATIENT
  Age: 55 Year
  Sex: Female
  Weight: 51 kg

DRUGS (11)
  1. ESTRADIOL. [Concomitant]
     Active Substance: ESTRADIOL
  2. ACETAMINOPHEN. [Concomitant]
     Active Substance: ACETAMINOPHEN
  3. HIZENTRA [Suspect]
     Active Substance: HUMAN IMMUNOGLOBULIN G
     Indication: IMMUNODEFICIENCY COMMON VARIABLE
     Route: 058
  4. SYNTHROID [Concomitant]
     Active Substance: LEVOTHYROXINE SODIUM
  5. PROGESTERONE. [Concomitant]
     Active Substance: PROGESTERONE
  6. EPIPEN [Concomitant]
     Active Substance: EPINEPHRINE
  7. PREDNISONE. [Concomitant]
     Active Substance: PREDNISONE
  8. LIDOCAINE. [Concomitant]
     Active Substance: LIDOCAINE
  9. TRAZODONE [Concomitant]
     Active Substance: TRAZODONE HYDROCHLORIDE
  10. DIPHENHYDRAMINE. [Concomitant]
     Active Substance: DIPHENHYDRAMINE
  11. PROZAC [Concomitant]
     Active Substance: FLUOXETINE HYDROCHLORIDE

REACTIONS (1)
  - Cystitis [Recovered/Resolved]

NARRATIVE: CASE EVENT DATE: 201603
